FAERS Safety Report 14172843 (Version 1)
Quarter: 2017Q4

REPORT INFORMATION
  Report Type: Spontaneous
  Country: US (occurrence: None)
  Receive Date: 20171108
  Receipt Date: 20171108
  Transmission Date: 20180321
  Serious: No
  Sender: FDA-Public Use
  Company Number: None

PATIENT
  Age: 2 Month
  Sex: Male

DRUGS (2)
  1. MYCOPHENOLATE 500MG ACCORD [Suspect]
     Active Substance: MYCOPHENOLATE MOFETIL
     Indication: ERYTHEMA
     Route: 048
     Dates: start: 20170927, end: 20171027
  2. CYCLOSPORINE 100MG MAYNE [Suspect]
     Active Substance: CYCLOSPORINE
     Indication: ERYTHEMA
     Route: 048
     Dates: start: 20161116

REACTIONS (3)
  - Ocular hyperaemia [None]
  - Diarrhoea [None]
  - Eye irritation [None]

NARRATIVE: CASE EVENT DATE: 20170926
